FAERS Safety Report 8578165 (Version 3)
Quarter: 2012Q4

REPORT INFORMATION
  Report Type: Spontaneous
  Country: US (occurrence: None)
  Receive Date: 20120521
  Receipt Date: 20121003
  Transmission Date: 20130627
  Serious: Yes (Other)
  Sender: FDA-Public Use
  Company Number: ADR-2012-00904

PATIENT
  Sex: Female

DRUGS (5)
  1. BACLOFEN [Suspect]
     Indication: HEAD INJURY
  2. BACLOFEN [Suspect]
     Indication: SPASTICITY
  3. BACLOFEN [Suspect]
  4. BACLOFEN [Suspect]
     Indication: BRAIN INJURY
  5. ORAL BACLOFEN [Concomitant]

REACTIONS (10)
  - Weight fluctuation [None]
  - Implant site scar [None]
  - Injury [None]
  - Muscle spasticity [None]
  - Extremity contracture [None]
  - Hypertonia [None]
  - Diplegia [None]
  - Oedema [None]
  - Implant site pain [None]
  - Medical device complication [None]
